FAERS Safety Report 25938921 (Version 2)
Quarter: 2025Q4

REPORT INFORMATION
  Report Type: Report from Study
  Country: EU (occurrence: EU)
  Receive Date: 20251019
  Receipt Date: 20251125
  Transmission Date: 20260117
  Serious: Yes (Death, Hospitalization)
  Sender: ABBVIE
  Company Number: EU-ABBVIE-6509022

PATIENT
  Age: 74 Year
  Sex: Male

DRUGS (1)
  1. FOSCARBIDOPA\FOSLEVODOPA [Suspect]
     Active Substance: FOSCARBIDOPA\FOSLEVODOPA
     Indication: Parkinson^s disease
     Dosage: DAILY DOSE: 1.9488 MG/DAY, CRL: 0.22 ML/H, CRB: 0.36 ML/H, CRH: 0.36 ML/H, ED: 0.3 ML, LD: 0.9 ML...
     Route: 058
     Dates: start: 20250410

REACTIONS (3)
  - Respiratory failure [Fatal]
  - Cardiac arrest [Fatal]
  - Respiratory arrest [Fatal]

NARRATIVE: CASE EVENT DATE: 20250101
